FAERS Safety Report 5803832-8 (Version None)
Quarter: 2008Q3

REPORT INFORMATION
  Report Type: 
  Country: None (occurrence: None)
  Receive Date: 20080708
  Receipt Date: 20080529
  Transmission Date: 20090109
  Serious: No
  Sender: FDA-Public Use
  Company Number: US-BOEHRINGER INGELHEIM GMBH, GERMANY-2008-BP-08430BP

PATIENT
  Sex: Male

DRUGS (5)
  1. FLOMAX [Suspect]
     Indication: BENIGN PROSTATIC HYPERPLASIA
     Route: 048
     Dates: start: 20010101
  2. PROSCAR [Concomitant]
  3. LIPITOR [Concomitant]
  4. BP MEDS [Concomitant]
  5. BETA BLOCKER [Concomitant]

REACTIONS (3)
  - EYE DISORDER [None]
  - MYODESOPSIA [None]
  - SEMEN VOLUME DECREASED [None]
